FAERS Safety Report 15852483 (Version 2)
Quarter: 2019Q1

REPORT INFORMATION
  Report Type: Report from Study
  Country: CA (occurrence: CA)
  Receive Date: 20190122
  Receipt Date: 20190131
  Transmission Date: 20190417
  Serious: Yes (Death, Other)
  Sender: FDA-Public Use
  Company Number: CA-ROCHE-2120594

PATIENT
  Age: 78 Year
  Sex: Female

DRUGS (19)
  1. ESBRIET [Suspect]
     Active Substance: PIRFENIDONE
     Dosage: 2 CAPSULE TID
     Route: 048
     Dates: start: 201807
  2. CITALOPRAM [Concomitant]
     Active Substance: CITALOPRAM HYDROBROMIDE
  3. ESBRIET [Suspect]
     Active Substance: PIRFENIDONE
     Route: 048
     Dates: start: 201806
  4. FUROSEMIDE. [Concomitant]
     Active Substance: FUROSEMIDE
  5. GABAPENTIN. [Concomitant]
     Active Substance: GABAPENTIN
  6. ROSUVASTATIN. [Concomitant]
     Active Substance: ROSUVASTATIN
  7. ESBRIET [Suspect]
     Active Substance: PIRFENIDONE
     Route: 048
     Dates: start: 20180516
  8. ESBRIET [Suspect]
     Active Substance: PIRFENIDONE
     Route: 048
  9. REPAGLINIDE. [Concomitant]
     Active Substance: REPAGLINIDE
  10. SAXAGLIPTIN HYDROCHLORIDE. [Concomitant]
     Active Substance: SAXAGLIPTIN HYDROCHLORIDE
  11. FERAMAX [Concomitant]
     Active Substance: IRON\POLYSACCHARIDES
  12. GLICLAZIDE [Concomitant]
     Active Substance: GLICLAZIDE
  13. ESBRIET [Suspect]
     Active Substance: PIRFENIDONE
     Indication: IDIOPATHIC PULMONARY FIBROSIS
     Route: 048
     Dates: start: 20180429
  14. ESBRIET [Suspect]
     Active Substance: PIRFENIDONE
     Dosage: 1 PILL THRICE A DAY
     Route: 048
     Dates: start: 20180530
  15. ESBRIET [Suspect]
     Active Substance: PIRFENIDONE
     Route: 048
  16. CANDESARTAN. [Concomitant]
     Active Substance: CANDESARTAN
  17. ESBRIET [Suspect]
     Active Substance: PIRFENIDONE
     Dosage: 4 PILLS A DAY
     Route: 048
     Dates: start: 2018
  18. CYANOCOBALAMIN. [Concomitant]
     Active Substance: CYANOCOBALAMIN
  19. SOLIFENACIN SUCCINATE. [Concomitant]
     Active Substance: SOLIFENACIN SUCCINATE

REACTIONS (7)
  - Death [Fatal]
  - Dyspnoea [Not Recovered/Not Resolved]
  - Fatigue [Unknown]
  - Insomnia [Not Recovered/Not Resolved]
  - Insomnia [Not Recovered/Not Resolved]
  - Asthenia [Unknown]
  - Dyspnoea [Not Recovered/Not Resolved]

NARRATIVE: CASE EVENT DATE: 2018
